FAERS Safety Report 18557732 (Version 2)
Quarter: 2021Q1

REPORT INFORMATION
  Report Type: Spontaneous
  Country: US (occurrence: US)
  Receive Date: 20201130
  Receipt Date: 20210101
  Transmission Date: 20210419
  Serious: No
  Sender: FDA-Public Use
  Company Number: US-ASTRAZENECA-2020SF46617

PATIENT
  Age: 27020 Day
  Sex: Female
  Weight: 81.6 kg

DRUGS (1)
  1. BYDUREON BCISE [Suspect]
     Active Substance: EXENATIDE
     Indication: TYPE 2 DIABETES MELLITUS
     Route: 058
     Dates: start: 202010

REACTIONS (5)
  - Incorrect dose administered by device [Unknown]
  - Injection site pain [Unknown]
  - Device leakage [Unknown]
  - Wrong technique in device usage process [Recovered/Resolved]
  - Injury associated with device [Unknown]

NARRATIVE: CASE EVENT DATE: 20201103
